FAERS Safety Report 18147666 (Version 13)
Quarter: 2025Q3

REPORT INFORMATION
  Report Type: Report from Study
  Country: BR (occurrence: BR)
  Receive Date: 20200813
  Receipt Date: 20250801
  Transmission Date: 20251020
  Serious: Yes (Other)
  Sender: NOVARTIS
  Company Number: PHHY2018BR090822

PATIENT
  Age: 42 Year
  Sex: Female
  Weight: 72 kg

DRUGS (30)
  1. COSENTYX [Suspect]
     Active Substance: SECUKINUMAB
     Indication: Ankylosing spondylitis
     Dosage: 150 MG, QMO
     Route: 058
     Dates: start: 20170802, end: 20180725
  2. COSENTYX [Suspect]
     Active Substance: SECUKINUMAB
     Indication: Spondylitis
     Route: 058
     Dates: start: 20190514
  3. COSENTYX [Suspect]
     Active Substance: SECUKINUMAB
     Route: 058
     Dates: start: 20190613
  4. COSENTYX [Suspect]
     Active Substance: SECUKINUMAB
     Route: 058
     Dates: start: 20200414
  5. COSENTYX [Suspect]
     Active Substance: SECUKINUMAB
     Route: 050
     Dates: start: 20200706
  6. COSENTYX [Suspect]
     Active Substance: SECUKINUMAB
     Route: 050
     Dates: start: 20200806
  7. COSENTYX [Suspect]
     Active Substance: SECUKINUMAB
     Route: 050
     Dates: start: 20210209
  8. COSENTYX [Suspect]
     Active Substance: SECUKINUMAB
     Route: 050
     Dates: start: 20210210
  9. COSENTYX [Suspect]
     Active Substance: SECUKINUMAB
     Route: 050
     Dates: start: 202103
  10. COSENTYX [Suspect]
     Active Substance: SECUKINUMAB
     Dosage: 300 MG, QMO (2 PENS) (INJECTION NOS)
     Route: 050
     Dates: start: 202106
  11. COSENTYX [Suspect]
     Active Substance: SECUKINUMAB
     Route: 050
     Dates: start: 20210716
  12. COSENTYX [Suspect]
     Active Substance: SECUKINUMAB
     Route: 050
     Dates: start: 20210904
  13. COSENTYX [Suspect]
     Active Substance: SECUKINUMAB
     Route: 050
     Dates: start: 20211005
  14. COSENTYX [Suspect]
     Active Substance: SECUKINUMAB
     Route: 050
     Dates: start: 20211209
  15. COSENTYX [Suspect]
     Active Substance: SECUKINUMAB
     Route: 050
     Dates: start: 20220110
  16. COSENTYX [Suspect]
     Active Substance: SECUKINUMAB
     Route: 050
     Dates: start: 20220511
  17. COSENTYX [Suspect]
     Active Substance: SECUKINUMAB
     Route: 050
     Dates: start: 20220709
  18. COSENTYX [Suspect]
     Active Substance: SECUKINUMAB
     Route: 050
  19. COSENTYX [Suspect]
     Active Substance: SECUKINUMAB
     Route: 050
  20. COSENTYX [Suspect]
     Active Substance: SECUKINUMAB
     Dosage: 1 DOSAGE FORM, QMO (INJECTION NOS)
     Route: 050
  21. COSENTYX [Suspect]
     Active Substance: SECUKINUMAB
     Route: 050
  22. COSENTYX [Suspect]
     Active Substance: SECUKINUMAB
     Dosage: 300 MG, QMO
     Route: 050
  23. COSENTYX [Suspect]
     Active Substance: SECUKINUMAB
     Dosage: 2 DOSAGE FORM (2 SYRINGES), QMO
     Route: 058
  24. TRAMADOL [Suspect]
     Active Substance: TRAMADOL
     Indication: Product used for unknown indication
     Route: 065
  25. GABAPENTIN [Concomitant]
     Active Substance: GABAPENTIN
     Indication: Product used for unknown indication
     Dosage: 300 MG, BID
     Route: 048
     Dates: start: 202503
  26. Dozemast [Concomitant]
     Indication: Product used for unknown indication
     Dosage: UNK, QW
     Route: 060
     Dates: start: 202409
  27. CHOLECALCIFEROL [Concomitant]
     Active Substance: CHOLECALCIFEROL
     Indication: Product used for unknown indication
     Dosage: 100000 IU, Q2MO
     Route: 030
     Dates: start: 202401
  28. CALCIUM CITRATE [Concomitant]
     Active Substance: CALCIUM CITRATE
     Indication: Product used for unknown indication
     Dosage: 2 G, TID
     Route: 048
  29. ACETAMINOPHEN [Concomitant]
     Active Substance: ACETAMINOPHEN
     Indication: Pain
     Dosage: 750 MG, Q8H
     Route: 048
  30. Dprev [Concomitant]
     Indication: Product used for unknown indication
     Route: 048
     Dates: start: 202409

REACTIONS (54)
  - Ophthalmic herpes zoster [Recovering/Resolving]
  - Herpes zoster [Recovering/Resolving]
  - Immunodeficiency [Recovering/Resolving]
  - Gardnerella infection [Not Recovered/Not Resolved]
  - Pain [Recovered/Resolved]
  - Nephrolithiasis [Not Recovered/Not Resolved]
  - Osteomalacia [Unknown]
  - Ankylosing spondylitis [Unknown]
  - Abdominal wall haematoma [Unknown]
  - Memory impairment [Recovered/Resolved]
  - Candida infection [Recovered/Resolved]
  - Urinary tract infection [Recovered/Resolved]
  - Myopia [Unknown]
  - Vision blurred [Unknown]
  - Visual impairment [Unknown]
  - Candida infection [Recovered/Resolved]
  - Pruritus [Recovered/Resolved]
  - Burning sensation [Recovered/Resolved]
  - Insomnia [Not Recovered/Not Resolved]
  - Paraesthesia [Recovering/Resolving]
  - Inflammation [Recovered/Resolved]
  - Joint injury [Unknown]
  - Inflammation [Unknown]
  - Renal pain [Not Recovered/Not Resolved]
  - Renal cyst [Not Recovered/Not Resolved]
  - Diastasis recti abdominis [Not Recovered/Not Resolved]
  - Dry skin [Not Recovered/Not Resolved]
  - Pyrexia [Unknown]
  - Fatigue [Not Recovered/Not Resolved]
  - Dry eye [Not Recovered/Not Resolved]
  - Umbilical hernia [Recovering/Resolving]
  - Nasal dryness [Not Recovered/Not Resolved]
  - Dry mouth [Not Recovered/Not Resolved]
  - Vulvovaginal dryness [Not Recovered/Not Resolved]
  - Pelvic pain [Unknown]
  - Kyphosis [Unknown]
  - Hernia [Unknown]
  - Dyspepsia [Unknown]
  - Constipation [Unknown]
  - Muscle rigidity [Not Recovered/Not Resolved]
  - Arthralgia [Not Recovered/Not Resolved]
  - Pain in extremity [Unknown]
  - Peripheral swelling [Not Recovered/Not Resolved]
  - Influenza [Recovering/Resolving]
  - Spinal pain [Not Recovered/Not Resolved]
  - Erythema [Recovering/Resolving]
  - Muscle spasms [Not Recovered/Not Resolved]
  - Cough [Unknown]
  - Condition aggravated [Recovered/Resolved]
  - Alanine aminotransferase increased [Unknown]
  - Aspartate aminotransferase increased [Unknown]
  - Arthritis [Not Recovered/Not Resolved]
  - Diarrhoea [Unknown]
  - Maternal exposure during pregnancy [Unknown]

NARRATIVE: CASE EVENT DATE: 20200426
